FAERS Safety Report 5578840-5 (Version None)
Quarter: 2008Q1

REPORT INFORMATION
  Report Type: 
  Country: None (occurrence: None)
  Receive Date: 20080102
  Receipt Date: 20071224
  Transmission Date: 20080703
  Serious: Yes (Hospitalization)
  Sender: FDA-Public Use
  Company Number: US-ROCHE-538563

PATIENT
  Age: 68 Year
  Sex: Female
  Weight: 69.4 kg

DRUGS (2)
  1. CAPECITABINE [Suspect]
     Indication: BREAST CANCER
     Dosage: OTHER INDICATION: STOMACH CANCER
     Route: 048
     Dates: start: 20070601
  2. CAPECITABINE [Suspect]
     Route: 048

REACTIONS (2)
  - GASTROENTERITIS ESCHERICHIA COLI [None]
  - KIDNEY INFECTION [None]
